FAERS Safety Report 5370996-2 (Version None)
Quarter: 2007Q2

REPORT INFORMATION
  Report Type: 
  Country: None (occurrence: None)
  Receive Date: 20070626
  Receipt Date: 20070614
  Transmission Date: 20071010
  Serious: Yes (Hospitalization, Other)
  Sender: FDA-Public Use
  Company Number: US-ELI_LILLY_AND_COMPANY-US200706000233

PATIENT
  Age: 74 Year
  Sex: Female

DRUGS (2)
  1. FORTEO [Suspect]
     Indication: OSTEOPOROSIS
     Dosage: UNK, EACH MORNING
     Dates: start: 20050101, end: 20050502
  2. FORTEO [Suspect]
     Dosage: UNK, UNK
     Dates: start: 20050501, end: 20070401

REACTIONS (6)
  - BLOOD PRESSURE INCREASED [None]
  - BONE DENSITY DECREASED [None]
  - LUPUS NEPHRITIS [None]
  - RENAL ARTERY OCCLUSION [None]
  - STENT PLACEMENT [None]
  - VASCULAR BYPASS GRAFT [None]
